FAERS Safety Report 7822884-7 (Version None)
Quarter: 2011Q4

REPORT INFORMATION
  Report Type: 
  Country: None (occurrence: None)
  Receive Date: 20111018
  Receipt Date: 20101117
  Transmission Date: 20120403
  Serious: No
  Sender: FDA-Public Use
  Company Number: US-ASTRAZENECA-2010SE51132

PATIENT
  Sex: Male

DRUGS (2)
  1. SYMBICORT [Suspect]
     Dosage: 80/4.5 MCG 2 PUFFS BID
     Route: 055
  2. SYMBICORT [Suspect]
     Dosage: 160 MCG TWO TIMES A DAY
     Route: 055

REACTIONS (8)
  - ARTHRALGIA [None]
  - CHILLS [None]
  - HEADACHE [None]
  - FEELING ABNORMAL [None]
  - DIZZINESS [None]
  - HALLUCINATION [None]
  - INSOMNIA [None]
  - GENERAL PHYSICAL CONDITION ABNORMAL [None]
